FAERS Safety Report 18140167 (Version 1)
Quarter: 2020Q3

REPORT INFORMATION
  Report Type: Spontaneous
  Country: AE (occurrence: AE)
  Receive Date: 20200812
  Receipt Date: 20200812
  Transmission Date: 20201103
  Serious: Yes (Other)
  Sender: FDA-Public Use
  Company Number: AE-AMNEAL PHARMACEUTICALS-2020-AMRX-02437

PATIENT
  Sex: Female

DRUGS (1)
  1. PROGESTERONE. [Suspect]
     Active Substance: PROGESTERONE
     Indication: MENSTRUAL DISORDER
     Dosage: UNK
     Route: 065

REACTIONS (2)
  - Endometrial metaplasia [Unknown]
  - Calcinosis [Unknown]
